FAERS Safety Report 4790375-6 (Version None)
Quarter: 2005Q4

REPORT INFORMATION
  Report Type: 
  Country: None (occurrence: None)
  Receive Date: 20051005
  Receipt Date: 20050921
  Transmission Date: 20060501
  Serious: Yes (Hospitalization)
  Sender: FDA-Public Use
  Company Number: US015686

PATIENT
  Age: 39 Year
  Sex: Female
  Weight: 70.3075 kg

DRUGS (5)
  1. PROVIGIL [Suspect]
     Indication: SLEEP APNOEA SYNDROME
     Dosage: 200 MG QD ORAL
     Route: 048
     Dates: start: 20050615
  2. LEVOTHROID [Concomitant]
  3. CYMBALTA [Concomitant]
     Indication: SLEEP APNOEA SYNDROME
  4. LEVOTHROID [Concomitant]
  5. CYMBALTA [Concomitant]

REACTIONS (2)
  - COAGULOPATHY [None]
  - PROCEDURAL COMPLICATION [None]
